FAERS Safety Report 10744038 (Version 1)
Quarter: 2015Q1

REPORT INFORMATION
  Report Type: Spontaneous
  Country: NL (occurrence: None)
  Receive Date: 20150126
  Receipt Date: 20150126
  Transmission Date: 20150721
  Serious: Yes (Hospitalization, Other)
  Sender: FDA-Public Use
  Company Number: ADR-2015-00174

PATIENT
  Age: 57 Year
  Sex: Male
  Weight: 64 kg

DRUGS (11)
  1. ROSUVASTATIN [Suspect]
     Active Substance: ROSUVASTATIN
  2. LOSARTAN [Concomitant]
     Active Substance: LOSARTAN
  3. PANTOPRAZOLE [Concomitant]
     Active Substance: PANTOPRAZOLE SODIUM
  4. MIRTAZAPINE. [Concomitant]
     Active Substance: MIRTAZAPINE
  5. DIAZEPAM. [Suspect]
     Active Substance: DIAZEPAM
  6. METFORMIN [Suspect]
     Active Substance: METFORMIN HYDROCHLORIDE
  7. CALCIUMCARBONATE/VITAMIN D3 [Suspect]
     Active Substance: CALCIUM CARBONATE\CHOLECALCIFEROL
  8. BACLOFEN (ORAL) [Suspect]
     Active Substance: BACLOFEN
     Indication: BACK PAIN
  9. AMLODIPINE [Concomitant]
     Active Substance: AMLODIPINE BESYLATE
  10. DICLOFENANC [Suspect]
     Active Substance: DICLOFENAC
  11. ALPRAZOLAM. [Concomitant]
     Active Substance: ALPRAZOLAM

REACTIONS (11)
  - Blood pressure increased [None]
  - Respiratory rate decreased [None]
  - White blood cell count increased [None]
  - Blood sodium decreased [None]
  - Loss of consciousness [None]
  - Blood glucose increased [None]
  - Continuous haemodiafiltration [None]
  - Haemoglobin decreased [None]
  - Depressed level of consciousness [None]
  - Restlessness [None]
  - Heart rate decreased [None]

NARRATIVE: CASE EVENT DATE: 20141221
